FAERS Safety Report 14695722 (Version 1)
Quarter: 2018Q1

REPORT INFORMATION
  Report Type: Spontaneous
  Country: US (occurrence: US)
  Receive Date: 20180328
  Receipt Date: 20180328
  Transmission Date: 20180509
  Serious: Yes (Hospitalization, Other)
  Sender: FDA-Public Use
  Company Number: None

PATIENT
  Age: 83 Year
  Sex: Male
  Weight: 79 kg

DRUGS (13)
  1. APIXABAN [Suspect]
     Active Substance: APIXABAN
     Indication: ATRIAL FIBRILLATION
     Route: 048
     Dates: end: 20180305
  2. LEVALBUTEROL. [Concomitant]
     Active Substance: LEVALBUTEROL
  3. ALBUTEROL. [Concomitant]
     Active Substance: ALBUTEROL
  4. FUROSEMIDE. [Concomitant]
     Active Substance: FUROSEMIDE
  5. DIPHENHYDRAMINE. [Concomitant]
     Active Substance: DIPHENHYDRAMINE
  6. HYDROCODONE/HOMATROPINE [Concomitant]
     Active Substance: HOMATROPINE METHYLBROMIDE\HYDROCODONE BITARTRATE
  7. DOXYCYCLINE. [Concomitant]
     Active Substance: DOXYCYCLINE
  8. ONDANSETRON [Concomitant]
     Active Substance: ONDANSETRON
  9. DILTIAZEM. [Concomitant]
     Active Substance: DILTIAZEM
  10. METOPROLOL TARTRATE. [Concomitant]
     Active Substance: METOPROLOL TARTRATE
  11. CARVEDILOL. [Concomitant]
     Active Substance: CARVEDILOL
  12. ACETAMINOPHEN. [Concomitant]
     Active Substance: ACETAMINOPHEN
  13. PIPERACILLIN/TAZOBACTAM [Concomitant]
     Active Substance: PIPERACILLIN SODIUM\TAZOBACTAM SODIUM

REACTIONS (8)
  - Hypotension [None]
  - Chronic obstructive pulmonary disease [None]
  - Atrial fibrillation [None]
  - Benign prostatic hyperplasia [None]
  - Condition aggravated [None]
  - Pneumonia [None]
  - Chronic kidney disease [None]
  - Cardiac failure congestive [None]

NARRATIVE: CASE EVENT DATE: 20180305
